FAERS Safety Report 9508215 (Version 1)
Quarter: 2013Q1

REPORT INFORMATION
  Report Type: Spontaneous
  Country: US (occurrence: None)
  Receive Date: 20130305
  Receipt Date: 20130305
  Transmission Date: 20140127
  Serious: Yes (Disabling)
  Sender: FDA-Public Use
  Company Number: 163-21880-12021160

PATIENT
  Age: 78 Year
  Sex: Male
  Weight: 84.82 kg

DRUGS (5)
  1. REVLIMID (LENALIDOMIDE) [Suspect]
     Indication: PLASMA CELL MYELOMA
     Route: 048
     Dates: start: 20110810
  2. DECADRON (DEXAMETHASONE) [Concomitant]
  3. PROTONIX [Concomitant]
  4. ARANESP (DARBEPOETIN ALFA) [Concomitant]
  5. ZOMETA (ZOLEDRONIC ACID) [Concomitant]

REACTIONS (1)
  - Diarrhoea [None]
